FAERS Safety Report 24327342 (Version 2)
Quarter: 2025Q1

REPORT INFORMATION
  Report Type: Report from Study
  Country: CA (occurrence: CA)
  Receive Date: 20240917
  Receipt Date: 20250128
  Transmission Date: 20250408
  Serious: Yes (Other)
  Sender: UCB
  Company Number: CA-UCBSA-2023010399

PATIENT
  Sex: Female

DRUGS (17)
  1. BIMEKIZUMAB [Suspect]
     Active Substance: BIMEKIZUMAB
     Indication: Psoriasis
     Dosage: 320 MILLIGRAM, EV 4 WEEKS
     Route: 058
     Dates: start: 20230214, end: 2023
  2. BIMEKIZUMAB [Suspect]
     Active Substance: BIMEKIZUMAB
     Dosage: 320 MILLIGRAM, EV 4 WEEKS
     Dates: start: 2023
  3. BIMEKIZUMAB [Suspect]
     Active Substance: BIMEKIZUMAB
     Dosage: 320 MILLIGRAM, EV 8 WEEKS
  4. FOLIC ACID [Concomitant]
     Active Substance: FOLIC ACID
     Indication: Product used for unknown indication
  5. CANDESARTAN [Concomitant]
     Active Substance: CANDESARTAN
     Indication: Product used for unknown indication
  6. PROZAC [Concomitant]
     Active Substance: FLUOXETINE HYDROCHLORIDE
     Indication: Product used for unknown indication
  7. MYRBETRIQ [Concomitant]
     Active Substance: MIRABEGRON
     Indication: Product used for unknown indication
  8. PANTOPRAZOLE [Concomitant]
     Active Substance: PANTOPRAZOLE
     Indication: Product used for unknown indication
  9. TOLTERODINE [Concomitant]
     Active Substance: TOLTERODINE
     Indication: Product used for unknown indication
  10. VITAMIN D NOS [Concomitant]
     Active Substance: CHOLECALCIFEROL\ERGOCALCIFEROL
     Indication: Product used for unknown indication
  11. WELLBUTRIN [Concomitant]
     Active Substance: BUPROPION HYDROCHLORIDE
     Indication: Product used for unknown indication
  12. ZOPICLONE [Concomitant]
     Active Substance: ZOPICLONE
     Indication: Product used for unknown indication
  13. NAPROXEN [Concomitant]
     Active Substance: NAPROXEN
     Indication: Product used for unknown indication
  14. TYLENOL [Concomitant]
     Active Substance: ACETAMINOPHEN
     Indication: Product used for unknown indication
  15. ATIVAN [Concomitant]
     Active Substance: LORAZEPAM
     Indication: Product used for unknown indication
  16. VITAMINS [Concomitant]
     Active Substance: VITAMINS
     Indication: Product used for unknown indication
  17. BIOTIN [Concomitant]
     Active Substance: BIOTIN
     Indication: Product used for unknown indication

REACTIONS (10)
  - Psoriatic arthropathy [Not Recovered/Not Resolved]
  - Respiratory tract infection [Not Recovered/Not Resolved]
  - Oral pain [Not Recovered/Not Resolved]
  - Influenza like illness [Not Recovered/Not Resolved]
  - Vulvovaginal mycotic infection [Not Recovered/Not Resolved]
  - Candida infection [Not Recovered/Not Resolved]
  - Malaise [Not Recovered/Not Resolved]
  - Stress [Unknown]
  - Product availability issue [Unknown]
  - Off label use [Unknown]

NARRATIVE: CASE EVENT DATE: 20230101
